FAERS Safety Report 5993679-4 (Version None)
Quarter: 2008Q4

REPORT INFORMATION
  Report Type: 
  Country: None (occurrence: None)
  Receive Date: 20081204
  Receipt Date: 20070303
  Transmission Date: 20090506
  Serious: Yes (Other)
  Sender: FDA-Public Use
  Company Number: THYM-11347

PATIENT
  Age: 62 Year
  Sex: Female
  Weight: 72.5 kg

DRUGS (17)
  1. THYMOGLOBULIN [Suspect]
     Indication: RENAL TRANSPLANT
     Dosage: 120 MG, QD, INTRAVENOUS ; INTRAVENOUS
     Route: 042
     Dates: start: 20070301
  2. THYMOGLOBULIN [Suspect]
     Indication: RENAL TRANSPLANT
     Dosage: 120 MG, QD, INTRAVENOUS ; INTRAVENOUS
     Route: 042
     Dates: start: 20070301
  3. ACYCLOVIR [Concomitant]
  4. EZETIMIBE [Concomitant]
  5. SIMVASTATIN [Concomitant]
  6. GABAPENTIN [Concomitant]
  7. DARBEPOETIN [Concomitant]
  8. BACTRIM [Concomitant]
  9. MYCOPHENOLATE MOFETIL [Concomitant]
  10. CHOLECALCIFEROL [Concomitant]
  11. INSULIN ASPART (INSULIN ASPART) [Concomitant]
  12. INSULIN ISOPHANE [Concomitant]
  13. METOPROLOL TARTRATE [Concomitant]
  14. ASPIRIN [Concomitant]
  15. DEXAMETHASONE TAB [Concomitant]
  16. IMMUNE GLOBULIN (IMMUNOGLOBULIN) [Concomitant]
  17. RITUXIMAB (RITUXIMAB) [Concomitant]

REACTIONS (2)
  - BODY TEMPERATURE INCREASED [None]
  - CHILLS [None]
